FAERS Safety Report 10430673 (Version 1)
Quarter: 2014Q3

REPORT INFORMATION
  Report Type: Spontaneous
  Country: US (occurrence: None)
  Receive Date: 20140903
  Receipt Date: 20140903
  Transmission Date: 20150326
  Serious: No
  Sender: FDA-Public Use
  Company Number: None

PATIENT
  Age: 68 Year
  Sex: Female

DRUGS (1)
  1. TELMISARTAN. [Suspect]
     Active Substance: TELMISARTAN
     Indication: HYPERTENSION
     Dosage: 10 DAYS, MAY AND JULY, 2014, 40MG, ONCE DAILY, TAKEN BY MOUTH
     Route: 048

REACTIONS (6)
  - Gastrointestinal disorder [None]
  - Aphagia [None]
  - Activities of daily living impaired [None]
  - Product substitution issue [None]
  - Abdominal pain upper [None]
  - Economic problem [None]
